FAERS Safety Report 17002782 (Version 4)
Quarter: 2019Q4

REPORT INFORMATION
  Report Type: Report from Study
  Country: DE (occurrence: DE)
  Receive Date: 20191107
  Receipt Date: 20191231
  Transmission Date: 20200122
  Serious: Yes (Hospitalization, Other)
  Sender: FDA-Public Use
  Company Number: DE-ASTRAZENECA-2019SF53563

PATIENT
  Sex: Female
  Weight: 93 kg

DRUGS (4)
  1. FULVESTRANT. [Suspect]
     Active Substance: FULVESTRANT
     Indication: BREAST CANCER METASTATIC
     Dosage: 500 MG (DAILY DOSE), QMO
     Route: 048
     Dates: start: 20190607, end: 20190705
  2. AVASTIN [Concomitant]
     Active Substance: BEVACIZUMAB
     Indication: BREAST CANCER METASTATIC
     Dosage: UNK
     Dates: start: 20190821, end: 20190826
  3. KISQALI [Suspect]
     Active Substance: RIBOCICLIB
     Indication: BREAST CANCER METASTATIC
     Route: 048
     Dates: start: 20190607, end: 20190628
  4. XELODA [Concomitant]
     Active Substance: CAPECITABINE
     Indication: BREAST CANCER METASTATIC
     Dosage: UNK
     Dates: start: 20190821, end: 20190826

REACTIONS (13)
  - Fatigue [Not Recovered/Not Resolved]
  - Chronic gastritis [Recovered/Resolved]
  - Nausea [Not Recovered/Not Resolved]
  - Coma [Unknown]
  - Vomiting [Recovered/Resolved]
  - Spinal stenosis [Recovered/Resolved]
  - Abdominal pain upper [Recovered/Resolved]
  - Diarrhoea [Not Recovered/Not Resolved]
  - Intercostal neuralgia [Recovered/Resolved]
  - Metastases to liver [Recovered/Resolved]
  - Malignant neoplasm progression [Recovered/Resolved]
  - Thoracic vertebral fracture [Recovered/Resolved]
  - Acute stress disorder [Unknown]

NARRATIVE: CASE EVENT DATE: 20190813
